FAERS Safety Report 9342592 (Version 1)
Quarter: 2013Q2

REPORT INFORMATION
  Report Type: Spontaneous
  Country: US (occurrence: US)
  Receive Date: 20130611
  Receipt Date: 20130611
  Transmission Date: 20140414
  Serious: Yes (Other)
  Sender: FDA-Public Use
  Company Number: US-BRISTOL-MYERS SQUIBB COMPANY-18999649

PATIENT
  Age: 58 Year
  Sex: Female
  Weight: 83.9 kg

DRUGS (5)
  1. BYETTA [Suspect]
     Indication: TYPE 2 DIABETES MELLITUS
     Dosage: DOSE INCREASED TO 10MCG ON JUN13
     Route: 058
     Dates: start: 2009
  2. METFORMIN HCL [Suspect]
  3. LISINOPRIL + HCTZ [Concomitant]
  4. LIPITOR [Concomitant]
  5. ASPIRIN [Concomitant]

REACTIONS (7)
  - Lung neoplasm malignant [Recovered/Resolved]
  - Colon cancer [Recovered/Resolved]
  - Blood glucose increased [Unknown]
  - Nausea [Not Recovered/Not Resolved]
  - Gastrooesophageal reflux disease [Unknown]
  - Liver disorder [Unknown]
  - Increased appetite [Unknown]
